FAERS Safety Report 15392731 (Version 1)
Quarter: 2018Q3

REPORT INFORMATION
  Report Type: Spontaneous
  Country: FR (occurrence: FR)
  Receive Date: 20180917
  Receipt Date: 20180917
  Transmission Date: 20181010
  Serious: Yes (Other)
  Sender: FDA-Public Use
  Company Number: FR-PFIZER INC-2018369966

PATIENT
  Age: 2 Year
  Sex: Male
  Weight: 20.4 kg

DRUGS (2)
  1. VINCRISTINE HOSPIRA [Suspect]
     Active Substance: VINCRISTINE
     Indication: GLIOMA
     Dosage: 1.06 MG, SINGLE
     Route: 040
     Dates: start: 20180601, end: 20180601
  2. CARBOPLATINE HOSPIRA [Suspect]
     Active Substance: CARBOPLATIN
     Indication: GLIOMA
     Dosage: 390.5 MG, SINGLE
     Route: 042
     Dates: start: 20180601, end: 20180601

REACTIONS (2)
  - Abdominal pain [Recovered/Resolved]
  - Anaphylactic reaction [Recovered/Resolved]

NARRATIVE: CASE EVENT DATE: 20180601
